FAERS Safety Report 25143497 (Version 3)
Quarter: 2025Q2

REPORT INFORMATION
  Report Type: Report from Study
  Country: BE (occurrence: BE)
  Receive Date: 20250401
  Receipt Date: 20250526
  Transmission Date: 20250717
  Serious: Yes (Other)
  Sender: EXELIXIS
  Company Number: BE-IPSEN Group, Research and Development-2025-07006

PATIENT

DRUGS (5)
  1. CABOZANTINIB [Suspect]
     Active Substance: CABOZANTINIB
     Indication: Renal cell carcinoma
     Dosage: 40 MG, QD
     Route: 065
     Dates: start: 20250213, end: 20250321
  2. CABOZANTINIB [Suspect]
     Active Substance: CABOZANTINIB
     Dosage: 40 MG, QD
     Route: 065
     Dates: start: 20250412
  3. NIVOLUMAB [Concomitant]
     Active Substance: NIVOLUMAB
     Dates: start: 20250221
  4. NIVOLUMAB [Concomitant]
     Active Substance: NIVOLUMAB
     Dates: start: 20250207
  5. NIVOLUMAB [Concomitant]
     Active Substance: NIVOLUMAB
     Dates: start: 20250307

REACTIONS (2)
  - Hepatitis [Recovered/Resolved]
  - Hypertension [Not Recovered/Not Resolved]

NARRATIVE: CASE EVENT DATE: 20250221
